FAERS Safety Report 13949696 (Version 4)
Quarter: 2017Q4

REPORT INFORMATION
  Report Type: Report from Study
  Country: US (occurrence: US)
  Receive Date: 20170908
  Receipt Date: 20171010
  Transmission Date: 20180320
  Serious: Yes (Hospitalization)
  Sender: FDA-Public Use
  Company Number: US-MALLINCKRODT-T201703634

PATIENT
  Sex: Female

DRUGS (1)
  1. REPOSITORY CORTICOTROPIN INJECTION [Suspect]
     Active Substance: CORTICOTROPIN
     Indication: SARCOIDOSIS
     Dosage: 80 UNITS/1 ML, TWO TIMES PER WEEK (TUESDAY AND FRIDAY)
     Route: 058
     Dates: start: 20170825, end: 20170914

REACTIONS (2)
  - Dyspnoea [Recovered/Resolved]
  - Loss of consciousness [Unknown]
